FAERS Safety Report 21783323 (Version 3)
Quarter: 2023Q1

REPORT INFORMATION
  Report Type: Spontaneous
  Country: CN (occurrence: CN)
  Receive Date: 20221227
  Receipt Date: 20230111
  Transmission Date: 20230418
  Serious: Yes (Death)
  Sender: FDA-Public Use
  Company Number: CN-PFIZER INC-202201392139

PATIENT
  Age: 89 Year
  Sex: Male

DRUGS (1)
  1. PAXLOVID [Suspect]
     Active Substance: NIRMATRELVIR\RITONAVIR
     Indication: COVID-19 treatment
     Dosage: UNK
     Dates: start: 202212, end: 202212

REACTIONS (4)
  - Drug ineffective for unapproved indication [Fatal]
  - Off label use [Unknown]
  - Intentional product misuse [Unknown]
  - Wrong technique in product usage process [Unknown]
